FAERS Safety Report 18292167 (Version 2)
Quarter: 2022Q1

REPORT INFORMATION
  Report Type: Spontaneous
  Country: US (occurrence: US)
  Receive Date: 20200922
  Receipt Date: 20220328
  Transmission Date: 20220424
  Serious: Yes (Other)
  Sender: FDA-Public Use
  Company Number: US-SAARTEMIS-SAC202009170413

PATIENT
  Age: 46 Year
  Sex: Male

DRUGS (1)
  1. ZANTAC [Suspect]
     Active Substance: RANITIDINE HYDROCHLORIDE
     Indication: Dyspepsia
     Dosage: UNK, QD
     Dates: start: 201112, end: 201312

REACTIONS (4)
  - Oesophageal carcinoma [Unknown]
  - Throat cancer [Unknown]
  - Tonsil cancer [Unknown]
  - Lymphoma [Unknown]

NARRATIVE: CASE EVENT DATE: 20131201
